FAERS Safety Report 10644936 (Version 1)
Quarter: 2014Q4

REPORT INFORMATION
  Report Type: Spontaneous
  Country: DK (occurrence: DK)
  Receive Date: 20141211
  Receipt Date: 20141211
  Transmission Date: 20150529
  Serious: Yes (Death)
  Sender: FDA-Public Use
  Company Number: DK-ROCHE-1505016

PATIENT
  Age: 58 Year
  Sex: Female

DRUGS (1)
  1. ACTILYSE [Suspect]
     Active Substance: ALTEPLASE
     Indication: THROMBOLYSIS
     Route: 065
     Dates: start: 20140612, end: 20140612

REACTIONS (4)
  - Cerebral haemorrhage [Fatal]
  - Hemiplegia [Fatal]
  - VIIth nerve paralysis [Fatal]
  - Speech disorder [Fatal]

NARRATIVE: CASE EVENT DATE: 20140612
